FAERS Safety Report 24728405 (Version 2)
Quarter: 2025Q1

REPORT INFORMATION
  Report Type: Report from Study
  Country: US (occurrence: US)
  Receive Date: 20241212
  Receipt Date: 20250313
  Transmission Date: 20250409
  Serious: Yes (Other)
  Sender: PFIZER
  Company Number: US-PFIZER INC-202400284551

PATIENT
  Age: 54 Year
  Sex: Female

DRUGS (17)
  1. IBRANCE [Suspect]
     Active Substance: PALBOCICLIB
     Indication: Breast cancer metastatic
     Route: 048
  2. IBRANCE [Suspect]
     Active Substance: PALBOCICLIB
     Route: 048
  3. IBRANCE [Suspect]
     Active Substance: PALBOCICLIB
     Route: 048
     Dates: start: 20241119, end: 20241129
  4. IBRANCE [Suspect]
     Active Substance: PALBOCICLIB
     Route: 048
  5. CALCIUM GLUCONATE [Concomitant]
     Active Substance: CALCIUM GLUCONATE
  6. FAMOTIDINE [Concomitant]
     Active Substance: FAMOTIDINE
  7. INFLUENZA VIRUS VACCINE [Concomitant]
     Active Substance: INFLUENZA VIRUS VACCINE
     Dates: start: 20240918, end: 20240918
  8. FULVESTRANT [Concomitant]
     Active Substance: FULVESTRANT
     Dates: start: 20250310
  9. LETROZOLE [Concomitant]
     Active Substance: LETROZOLE
  10. LEVETIRACETAM [Concomitant]
     Active Substance: LEVETIRACETAM
  11. SENNA LAXATIVE [Concomitant]
     Active Substance: SENNOSIDES
  12. SYSTANE (HYPROMELLOSE 2910 (4000 MPA.S)) [Concomitant]
     Active Substance: HYPROMELLOSE 2910 (4000 MPA.S)
  13. CALCIUM CARBONATE\MAGNESIUM CARBONATE\MAGNESIUM TRISILICATE [Concomitant]
     Active Substance: CALCIUM CARBONATE\MAGNESIUM CARBONATE\MAGNESIUM TRISILICATE
  14. TYLENOL [Concomitant]
     Active Substance: ACETAMINOPHEN
  15. VITAMIN D3 GUMMY [Concomitant]
  16. ONDANSETRON HYDROCHLORIDE [Concomitant]
     Active Substance: ONDANSETRON HYDROCHLORIDE
  17. FERROUS SULFATE [Concomitant]
     Active Substance: FERROUS SULFATE

REACTIONS (20)
  - Seizure [Unknown]
  - Pulmonary oedema [Unknown]
  - Metastases to bone [Unknown]
  - Metastases to liver [Unknown]
  - Metastases to lung [Not Recovered/Not Resolved]
  - Nausea [Recovered/Resolved]
  - Fatigue [Unknown]
  - Contusion [Unknown]
  - Gastrooesophageal reflux disease [Unknown]
  - Dyspnoea [Not Recovered/Not Resolved]
  - White blood cell count decreased [Unknown]
  - Haemoglobin decreased [Unknown]
  - Pyrexia [Unknown]
  - Asthenia [Unknown]
  - Oral infection [Not Recovered/Not Resolved]
  - Condition aggravated [Not Recovered/Not Resolved]
  - Sinusitis [Unknown]
  - Ear infection [Unknown]
  - Cough [Unknown]
  - Dyspnoea [Not Recovered/Not Resolved]

NARRATIVE: CASE EVENT DATE: 20241020
